FAERS Safety Report 18844900 (Version 8)
Quarter: 2023Q1

REPORT INFORMATION
  Report Type: Report from Study
  Country: CA (occurrence: CA)
  Receive Date: 20210204
  Receipt Date: 20230224
  Transmission Date: 20230418
  Serious: Yes (Other)
  Sender: FDA-Public Use
  Company Number: CA-BAUSCH-BL-2021-003997

PATIENT
  Age: 59 Year
  Sex: Male

DRUGS (3)
  1. SILIQ [Suspect]
     Active Substance: BRODALUMAB
     Indication: Psoriasis
     Dosage: 210MG/1.5 ML, WEEKLY (WEEK: 0, 1 ,2)
     Route: 058
     Dates: start: 20210120, end: 202102
  2. SILIQ [Suspect]
     Active Substance: BRODALUMAB
     Dosage: 210MG/1.5 ML, EVERY 2 WEEKS
     Route: 058
     Dates: start: 2021, end: 2022
  3. SILIQ [Suspect]
     Active Substance: BRODALUMAB
     Dosage: 210MG/ 1.5 ML, Q2 WEEKS
     Route: 058

REACTIONS (5)
  - Blood pressure increased [Not Recovered/Not Resolved]
  - Somnolence [Not Recovered/Not Resolved]
  - Heart rate increased [Recovered/Resolved]
  - Acne [Unknown]
  - Therapy interrupted [Unknown]

NARRATIVE: CASE EVENT DATE: 20210101
